FAERS Safety Report 10457616 (Version 2)
Quarter: 2014Q4

REPORT INFORMATION
  Report Type: Spontaneous
  Country: US (occurrence: IT)
  Receive Date: 20140916
  Receipt Date: 20141002
  Transmission Date: 20150528
  Serious: Yes (Hospitalization)
  Sender: FDA-Public Use
  Company Number: IT-FRI-1000070699

PATIENT
  Age: 38 Year
  Sex: Female

DRUGS (4)
  1. LAMICTAL [Concomitant]
     Active Substance: LAMOTRIGINE
     Dosage: 100 MG
  2. ASENAPINE [Suspect]
     Active Substance: ASENAPINE
     Indication: DEPRESSION
     Dosage: 5 MG
     Route: 060
     Dates: start: 20140327, end: 20140330
  3. ZARELIS [Concomitant]
     Active Substance: VENLAFAXINE HYDROCHLORIDE
     Dosage: 150 MG
  4. DELORAZEPAM [Concomitant]
     Active Substance: DELORAZEPAM
     Dosage: 1 MG

REACTIONS (5)
  - Psychomotor hyperactivity [Not Recovered/Not Resolved]
  - Conversion disorder [Not Recovered/Not Resolved]
  - Tremor [Not Recovered/Not Resolved]
  - Sopor [Not Recovered/Not Resolved]
  - Musculoskeletal stiffness [Not Recovered/Not Resolved]

NARRATIVE: CASE EVENT DATE: 20140328
